FAERS Safety Report 16690771 (Version 1)
Quarter: 2019Q3

REPORT INFORMATION
  Report Type: Spontaneous
  Country: US (occurrence: US)
  Receive Date: 20190811
  Receipt Date: 20190811
  Transmission Date: 20191004
  Serious: No
  Sender: FDA-Public Use
  Company Number: US-009507513-1908USA003132

PATIENT
  Sex: Female

DRUGS (1)
  1. NEXPLANON [Suspect]
     Active Substance: ETONOGESTREL
     Dosage: FOR THREE YEARS

REACTIONS (3)
  - Device kink [Recovered/Resolved]
  - Therapeutic product effect prolonged [Unknown]
  - Device deployment issue [Recovered/Resolved]
